FAERS Safety Report 18853414 (Version 4)
Quarter: 2024Q2

REPORT INFORMATION
  Report Type: Spontaneous
  Country: US (occurrence: US)
  Receive Date: 20210205
  Receipt Date: 20240422
  Transmission Date: 20240715
  Serious: Yes (Hospitalization, Other)
  Sender: FDA-Public Use
  Company Number: US-SK LIFE SCIENCE, INC-SKPVG-2021-000090

PATIENT

DRUGS (26)
  1. XCOPRI [Suspect]
     Active Substance: CENOBAMATE
     Indication: Brain neoplasm
     Dosage: 25 MILLIGRAM
     Route: 048
  2. XCOPRI [Suspect]
     Active Substance: CENOBAMATE
     Indication: Seizure
     Dosage: 50 MILLIGRAM
     Route: 048
  3. XCOPRI [Suspect]
     Active Substance: CENOBAMATE
     Dosage: 100 MILLIGRAM
     Route: 048
  4. XCOPRI [Suspect]
     Active Substance: CENOBAMATE
     Dosage: 200 MG ONCE DAILY (EVERY MORNING)
     Route: 048
     Dates: start: 2020
  5. SINGULAIR [Concomitant]
     Active Substance: MONTELUKAST SODIUM
     Indication: Product used for unknown indication
     Dosage: 10 MILLIGRAM
     Route: 065
  6. METHOTREXATE [Concomitant]
     Active Substance: METHOTREXATE
     Indication: Product used for unknown indication
     Dosage: 25 MILLIGRAM
     Route: 065
  7. FOSAMAX [Concomitant]
     Active Substance: ALENDRONATE SODIUM
     Indication: Product used for unknown indication
     Dosage: 70 MILLIGRAM
     Route: 065
  8. ZYRTEC [Concomitant]
     Active Substance: CETIRIZINE HYDROCHLORIDE
     Indication: Product used for unknown indication
     Dosage: 10 MILLIGRAM
     Route: 065
  9. PREDNISONE [Concomitant]
     Active Substance: PREDNISONE
     Indication: Product used for unknown indication
     Dosage: 5 MILLIGRAM
     Route: 065
  10. ATENOLOL [Concomitant]
     Active Substance: ATENOLOL
     Indication: Product used for unknown indication
     Dosage: 25 MILLIGRAM
     Route: 065
  11. SIMVASTATIN [Concomitant]
     Active Substance: SIMVASTATIN
     Indication: Product used for unknown indication
     Dosage: 20 MILLIGRAM
     Route: 065
  12. GABAPENTIN [Concomitant]
     Active Substance: GABAPENTIN
     Indication: Product used for unknown indication
     Dosage: 600 MILLIGRAM
     Route: 065
  13. GABAPENTIN [Concomitant]
     Active Substance: GABAPENTIN
     Dosage: 800 MILLIGRAM
     Route: 065
  14. TENATOPRAZOLE [Concomitant]
     Indication: Product used for unknown indication
     Dosage: 40 MILLIGRAM
     Route: 065
  15. TOPAMAX [Concomitant]
     Active Substance: TOPIRAMATE
     Indication: Ill-defined disorder
     Dosage: 100 MILLIGRAM
     Route: 065
  16. TOPAMAX [Concomitant]
     Active Substance: TOPIRAMATE
     Dosage: 50 MILLIGRAM
     Route: 065
  17. MOBIC [Concomitant]
     Active Substance: MELOXICAM
     Indication: Product used for unknown indication
     Dosage: 15 MILLIGRAM
     Route: 065
  18. TRAZODONE [Concomitant]
     Active Substance: TRAZODONE HYDROCHLORIDE
     Indication: Product used for unknown indication
     Dosage: 50 MILLIGRAM
     Route: 065
  19. HYDROXYCHLOROQUINE [Concomitant]
     Active Substance: HYDROXYCHLOROQUINE
     Indication: Product used for unknown indication
     Dosage: 200 MILLIGRAM
     Route: 065
  20. TYLENOL [Concomitant]
     Active Substance: ACETAMINOPHEN
     Indication: Product used for unknown indication
     Dosage: 500 MILLIGRAM
     Route: 065
  21. VITAMINS                           /00067501/ [Concomitant]
     Indication: Product used for unknown indication
     Route: 065
  22. ALBUTEROL [Concomitant]
     Active Substance: ALBUTEROL
     Indication: Product used for unknown indication
     Dosage: INHALER
     Route: 065
  23. CRESTOR [Concomitant]
     Active Substance: ROSUVASTATIN CALCIUM
     Indication: Product used for unknown indication
     Dosage: UNK
     Route: 065
  24. PLAQUENIL [Concomitant]
     Active Substance: HYDROXYCHLOROQUINE SULFATE
     Indication: Product used for unknown indication
     Dosage: 200 MILLIGRAM
     Route: 065
  25. FLONASE [Concomitant]
     Active Substance: FLUTICASONE PROPIONATE
     Indication: Product used for unknown indication
     Dosage: NASAL SPRAY
     Route: 065
  26. ACTEMRA [Concomitant]
     Active Substance: TOCILIZUMAB
     Indication: Product used for unknown indication
     Dosage: 40 MILLIGRAM
     Route: 065

REACTIONS (6)
  - Nephrolithiasis [Not Recovered/Not Resolved]
  - Product dose omission issue [Recovered/Resolved]
  - Off label use [Not Recovered/Not Resolved]
  - Product use issue [Recovered/Resolved]
  - Product use issue [Unknown]
  - Product use issue [Not Recovered/Not Resolved]

NARRATIVE: CASE EVENT DATE: 20210105
